FAERS Safety Report 4912877-1 (Version None)
Quarter: 2006Q1

REPORT INFORMATION
  Report Type: 
  Country: None (occurrence: None)
  Receive Date: 20060210
  Receipt Date: 20060201
  Transmission Date: 20060701
  Serious: Yes (Other)
  Sender: FDA-Public Use
  Company Number: B0361659A

PATIENT
  Sex: Female

DRUGS (1)
  1. PAXIL [Suspect]
     Indication: DEPRESSION
     Dates: start: 20020228, end: 20040611

REACTIONS (11)
  - ANGER [None]
  - DRUG DEPENDENCE [None]
  - DRUG WITHDRAWAL SYNDROME [None]
  - FORMICATION [None]
  - HALLUCINATION [None]
  - INTENTIONAL OVERDOSE [None]
  - LABYRINTHITIS [None]
  - MEMORY IMPAIRMENT [None]
  - NIGHTMARE [None]
  - PSYCHOSOMATIC DISEASE [None]
  - SUICIDAL IDEATION [None]
